FAERS Safety Report 7534618-4 (Version None)
Quarter: 2011Q2

REPORT INFORMATION
  Report Type: 
  Country: None (occurrence: None)
  Receive Date: 20110609
  Receipt Date: 20100929
  Transmission Date: 20111010
  Serious: Yes (Other)
  Sender: FDA-Public Use
  Company Number: PHHY2010AT66699

PATIENT
  Age: 34 Year
  Sex: Female

DRUGS (1)
  1. DEFERASIROX [Suspect]
     Indication: THALASSAEMIA BETA
     Dosage: 20 MG/KG, QD
     Route: 048

REACTIONS (1)
  - PANCYTOPENIA [None]
